FAERS Safety Report 17476318 (Version 1)
Quarter: 2020Q1

REPORT INFORMATION
  Report Type: Report from Study
  Country: CO (occurrence: CO)
  Receive Date: 20200228
  Receipt Date: 20200228
  Transmission Date: 20200409
  Serious: Yes (Other)
  Sender: FDA-Public Use
  Company Number: CO-JNJFOC-20191017688

PATIENT
  Sex: Male
  Weight: 105 kg

DRUGS (1)
  1. SIMPONI [Suspect]
     Active Substance: GOLIMUMAB
     Indication: ANKYLOSING SPONDYLITIS
     Dosage: ALSO REPORTED STOP DATE AS 12-MAR-2018
     Route: 058
     Dates: start: 20170404, end: 201909

REACTIONS (1)
  - Gastritis bacterial [Recovering/Resolving]

NARRATIVE: CASE EVENT DATE: 2019
